FAERS Safety Report 22164166 (Version 1)
Quarter: 2023Q2

REPORT INFORMATION
  Report Type: Spontaneous
  Country: US (occurrence: US)
  Receive Date: 20230402
  Receipt Date: 20230402
  Transmission Date: 20230721
  Serious: No
  Sender: FDA-Public Use
  Company Number: US-drreddys-SPO/USA/23/0161218

PATIENT
  Age: 13 Year
  Sex: Female

DRUGS (1)
  1. ACCUTANE [Suspect]
     Active Substance: ISOTRETINOIN
     Indication: Product used for unknown indication
     Dosage: RMA ISSUE DATE: 02 JUNE 2022 12:09:22 PM, 11 JULY 2022 11:06:11 AM, 12 AUGUST 2022 09:04:24 AM, 16 S

REACTIONS (1)
  - Treatment noncompliance [Unknown]
